FAERS Safety Report 7202097-2 (Version None)
Quarter: 2010Q4

REPORT INFORMATION
  Report Type: 
  Country: None (occurrence: None)
  Receive Date: 20101229
  Receipt Date: 20101222
  Transmission Date: 20110411
  Serious: Yes (Hospitalization)
  Sender: FDA-Public Use
  Company Number: GR-MPIJNJ-2010-06338

PATIENT

DRUGS (3)
  1. VELCADE [Suspect]
     Indication: MULTIPLE MYELOMA
     Dosage: UNK
  2. DEXAMETHASONE [Concomitant]
     Indication: MULTIPLE MYELOMA
  3. DEXAMETHASONE [Concomitant]

REACTIONS (1)
  - INFECTION [None]
